FAERS Safety Report 13033236 (Version 3)
Quarter: 2017Q1

REPORT INFORMATION
  Report Type: Spontaneous
  Country: JP (occurrence: JP)
  Receive Date: 20161216
  Receipt Date: 20170131
  Transmission Date: 20170428
  Serious: Yes (Other)
  Sender: FDA-Public Use
  Company Number: JP-ROCHE-1867482

PATIENT
  Age: 62 Year
  Sex: Male

DRUGS (9)
  1. BROVARIN [Concomitant]
     Route: 048
  2. TAMIFLU [Suspect]
     Active Substance: OSELTAMIVIR PHOSPHATE
     Indication: INFLUENZA
     Route: 048
     Dates: start: 20161205, end: 20161205
  3. RISPERIDONE. [Concomitant]
     Active Substance: RISPERIDONE
     Route: 048
  4. OLANZAPINE. [Concomitant]
     Active Substance: OLANZAPINE
     Route: 048
  5. HALCION [Concomitant]
     Active Substance: TRIAZOLAM
     Dosage: AMOUNT OF SINGLE-DOSE: 0.25 (UNIT UNCERTAINTY)
     Route: 048
  6. C-CYSTEN [Concomitant]
     Active Substance: CARBOCYSTEINE
     Route: 048
  7. MAGNESIUM OXIDE. [Concomitant]
     Active Substance: MAGNESIUM OXIDE
     Dosage: AMOUNT OF SINGLE-DOSE: 1.5 (UNIT UNCERTAINTY)
     Route: 048
  8. CALONAL [Concomitant]
     Active Substance: ACETAMINOPHEN
  9. CLEANAL [Concomitant]
     Active Substance: FUDOSTEINE
     Dosage: AMOUNT OF SINGLE-DOSE: 3 (UNIT UNCERTAINTY)
     Route: 048

REACTIONS (4)
  - Pneumonia [Recovered/Resolved]
  - Seizure [Recovered/Resolved]
  - Liver function test increased [Recovered/Resolved]
  - Rhabdomyolysis [Unknown]

NARRATIVE: CASE EVENT DATE: 20161205
